FAERS Safety Report 12924951 (Version 1)
Quarter: 2016Q4

REPORT INFORMATION
  Report Type: Spontaneous
  Country: TR (occurrence: TR)
  Receive Date: 20161109
  Receipt Date: 20161109
  Transmission Date: 20170207
  Serious: Yes (Hospitalization)
  Sender: FDA-Public Use
  Company Number: TR-PFIZER INC-2016502315

PATIENT
  Age: 81 Year
  Sex: Male

DRUGS (1)
  1. VFEND [Suspect]
     Active Substance: VORICONAZOLE
     Indication: SINUSITIS FUNGAL
     Dosage: 200 MG, 3X/DAY (2 TABLETS IN THE MORNING, 1 TABLET IN THE EVENING)

REACTIONS (2)
  - Blood test abnormal [Unknown]
  - Plasma cell myeloma [Unknown]
